FAERS Safety Report 6037575-5 (Version None)
Quarter: 2009Q1

REPORT INFORMATION
  Report Type: 
  Country: None (occurrence: None)
  Receive Date: 20090114
  Receipt Date: 20090106
  Transmission Date: 20090719
  Serious: Yes (Hospitalization, Other)
  Sender: FDA-Public Use
  Company Number: GB-ELI_LILLY_AND_COMPANY-GB200811006326

PATIENT
  Sex: Female
  Weight: 70 kg

DRUGS (4)
  1. ZYPREXA [Suspect]
     Indication: AGITATION
     Dosage: 15 MG, UNK
     Route: 048
     Dates: start: 20070301, end: 20081101
  2. LOFEPRAMINE [Concomitant]
     Indication: DEPRESSION
     Dosage: 70 MG, 2/D
  3. PROPRANOLOL [Concomitant]
     Indication: HYPERTENSION
     Dosage: 80 MG, 2/D
  4. DIAZEPAM [Concomitant]
     Indication: ANXIETY
     Dosage: 5 MG, 3/D

REACTIONS (3)
  - HOSPITALISATION [None]
  - MUSCULAR WEAKNESS [None]
  - TRANSIENT ISCHAEMIC ATTACK [None]
